FAERS Safety Report 21126437 (Version 1)
Quarter: 2022Q3

REPORT INFORMATION
  Report Type: Spontaneous
  Country: FR (occurrence: FR)
  Receive Date: 20220725
  Receipt Date: 20220725
  Transmission Date: 20221027
  Serious: Yes (Hospitalization)
  Sender: FDA-Public Use
  Company Number: None

PATIENT
  Age: 15 Year
  Sex: Male
  Weight: 51 kg

DRUGS (1)
  1. MEKINIST [Suspect]
     Active Substance: TRAMETINIB DIMETHYL SULFOXIDE
     Indication: Glioneuronal tumour
     Dosage: UNK
     Route: 048
     Dates: start: 202105, end: 202205

REACTIONS (1)
  - Henoch-Schonlein purpura [Recovering/Resolving]

NARRATIVE: CASE EVENT DATE: 20220501
